FAERS Safety Report 7375699-0 (Version None)
Quarter: 2011Q1

REPORT INFORMATION
  Report Type: 
  Country: None (occurrence: None)
  Receive Date: 20110325
  Receipt Date: 20110318
  Transmission Date: 20110831
  Serious: Yes (Hospitalization)
  Sender: FDA-Public Use
  Company Number: FR-PFIZER INC-2011059657

PATIENT
  Age: 61 Year
  Sex: Male

DRUGS (9)
  1. MOBIC [Suspect]
     Indication: ROTATOR CUFF SYNDROME
     Dosage: SPORADICALLY
  2. ARTOTEC [Suspect]
     Indication: ROTATOR CUFF SYNDROME
     Dosage: SPORADICALLY
  3. ARCOXIA [Suspect]
     Dosage: 1 TO 2 TABLETS PER DAY
     Route: 048
     Dates: start: 20101201, end: 20101201
  4. CELEBREX [Suspect]
     Indication: ROTATOR CUFF SYNDROME
     Dosage: 200 MG, UNK
  5. DIAMICRON [Concomitant]
     Indication: TYPE 2 DIABETES MELLITUS
     Dosage: UNK
  6. ARCOXIA [Suspect]
     Dosage: 1 TO 2 TABLETS PER WEEK
     Route: 048
     Dates: start: 20110101, end: 20110101
  7. ACETYLSALICYLIC ACID [Concomitant]
     Indication: ROTATOR CUFF SYNDROME
     Dosage: SPORADICALLY
  8. ARCOXIA [Suspect]
     Indication: TENDON DISORDER
     Dosage: 1 TO 2 TABLETS PER WEEK
     Route: 048
     Dates: start: 20101001, end: 20101201
  9. VOLTAREN [Suspect]
     Indication: ROTATOR CUFF SYNDROME
     Dosage: SPORADICALLY

REACTIONS (1)
  - NEPHROTIC SYNDROME [None]
